FAERS Safety Report 5806141-6 (Version None)
Quarter: 2008Q3

REPORT INFORMATION
  Report Type: 
  Country: None (occurrence: None)
  Receive Date: 20080710
  Receipt Date: 20080707
  Transmission Date: 20090109
  Serious: Yes (Disabling)
  Sender: FDA-Public Use
  Company Number: DE-MERCK-0806DEU00117

PATIENT
  Age: 66 Year
  Sex: Male
  Weight: 73 kg

DRUGS (8)
  1. ZETIA [Suspect]
     Indication: HYPERCHOLESTEROLAEMIA
     Route: 048
     Dates: start: 20061101, end: 20070201
  2. ZETIA [Suspect]
     Route: 048
     Dates: start: 20070201, end: 20080602
  3. ASPIRIN [Suspect]
     Indication: CORONARY ARTERY DISEASE
     Route: 065
     Dates: start: 20030801
  4. NEXIUM [Suspect]
     Indication: GASTRITIS
     Route: 065
     Dates: start: 20060501
  5. RAMIPRIL [Suspect]
     Indication: HYPERTENSION
     Route: 065
     Dates: start: 20060401
  6. HYDRODIURIL [Suspect]
     Indication: HYPERTENSION
     Route: 065
     Dates: start: 20060501
  7. METOPROLOL [Suspect]
     Indication: HYPERTENSION
     Route: 065
     Dates: start: 20060501
  8. METOPROLOL [Suspect]
     Indication: CORONARY ARTERY DISEASE
     Route: 065
     Dates: start: 20060501

REACTIONS (3)
  - DRUG INTERACTION [None]
  - MYALGIA [None]
  - TENDON RUPTURE [None]
